FAERS Safety Report 10098701 (Version 2)
Quarter: 2014Q2

REPORT INFORMATION
  Report Type: Spontaneous
  Country: US (occurrence: US)
  Receive Date: 20140423
  Receipt Date: 20140530
  Transmission Date: 20141212
  Serious: Yes (Life-Threatening, Hospitalization, Disabling)
  Sender: FDA-Public Use
  Company Number: US-JNJFOC-20140411826

PATIENT
  Sex: Female

DRUGS (13)
  1. XARELTO [Suspect]
     Indication: CEREBROVASCULAR ACCIDENT PROPHYLAXIS
     Route: 048
  2. XARELTO [Suspect]
     Indication: ATRIAL FIBRILLATION
     Route: 048
  3. XARELTO [Suspect]
     Indication: ANTICOAGULANT THERAPY
     Route: 048
  4. AMIODARONE [Concomitant]
     Route: 065
  5. COREG [Concomitant]
     Route: 065
  6. GLUCOPHAGE [Concomitant]
     Route: 065
  7. LASIX [Concomitant]
     Route: 065
  8. ADVAIR [Concomitant]
     Route: 065
  9. FISH OIL [Concomitant]
     Route: 065
  10. GLUCOSAMINE [Concomitant]
     Route: 065
  11. COQ10 [Concomitant]
     Route: 065
  12. ACETYL SALICYLIC ACID [Concomitant]
     Route: 065
  13. LIPITOR [Concomitant]
     Route: 065

REACTIONS (3)
  - Cerebrovascular accident [Not Recovered/Not Resolved]
  - Hemiplegia [Not Recovered/Not Resolved]
  - Drug ineffective [Unknown]
